FAERS Safety Report 12898521 (Version 3)
Quarter: 2017Q1

REPORT INFORMATION
  Report Type: Spontaneous
  Country: US (occurrence: US)
  Receive Date: 20161031
  Receipt Date: 20170213
  Transmission Date: 20170428
  Serious: No
  Sender: FDA-Public Use
  Company Number: US-TAIHO ONCOLOGY INC-EU-2016-02791

PATIENT
  Age: 79 Year
  Sex: Male

DRUGS (7)
  1. PROCARDIA XL [Concomitant]
     Active Substance: NIFEDIPINE
     Dosage: NI
  2. METHENAMINE HIPPURATE. [Concomitant]
     Active Substance: METHENAMINE HIPPURATE
     Dosage: NI
  3. METOPROLOL. [Concomitant]
     Active Substance: METOPROLOL
     Dosage: NI
  4. ASCORBIC ACID. [Concomitant]
     Active Substance: ASCORBIC ACID
     Dosage: NI
  5. AVODART [Concomitant]
     Active Substance: DUTASTERIDE
     Dosage: NI
  6. LONSURF [Suspect]
     Active Substance: TIPIRACIL HYDROCHLORIDE\TRIFLURIDINE
     Indication: RECTOSIGMOID CANCER
     Route: 048
     Dates: start: 20160903
  7. CALCIUM GLUCONATE. [Concomitant]
     Active Substance: CALCIUM GLUCONATE
     Dosage: NI

REACTIONS (3)
  - Fatigue [Not Recovered/Not Resolved]
  - Decreased appetite [Not Recovered/Not Resolved]
  - Nausea [Not Recovered/Not Resolved]

NARRATIVE: CASE EVENT DATE: 201609
